FAERS Safety Report 22114478 (Version 3)
Quarter: 2023Q2

REPORT INFORMATION
  Report Type: Spontaneous
  Country: JP (occurrence: JP)
  Receive Date: 20230320
  Receipt Date: 20230515
  Transmission Date: 20230721
  Serious: Yes (Hospitalization, Disabling, Other)
  Sender: FDA-Public Use
  Company Number: JP-GLAXOSMITHKLINE-JP2023JPN040617

PATIENT

DRUGS (11)
  1. DAPRODUSTAT [Suspect]
     Active Substance: DAPRODUSTAT
     Indication: Nephrogenic anaemia
     Dosage: 4 MG, QD
     Route: 048
     Dates: start: 20230228, end: 20230310
  2. ATORVASTATIN OD TABLETS [Concomitant]
     Indication: Hypercholesterolaemia
     Dosage: 5 MG, QD
     Route: 048
     Dates: start: 20200803
  3. PLETAAL OD TABLETS [Concomitant]
     Indication: Cerebral infarction
     Dosage: 100 MG, QD
     Route: 048
     Dates: start: 20200803
  4. FEBUXOSTAT [Concomitant]
     Active Substance: FEBUXOSTAT
     Indication: Hyperuricaemia
     Dosage: 10 MG, QD
     Route: 048
     Dates: start: 20200803
  5. AMLODIN OD TABLETS [Concomitant]
     Indication: Hypertension
     Dosage: 5 MG, QD
     Route: 048
     Dates: start: 20200803
  6. FORXIGA TABLET [Concomitant]
     Indication: Type 2 diabetes mellitus
     Dosage: 10 MG, QD
     Route: 048
     Dates: start: 20220329
  7. ALDACTONE-A TABLETS [Concomitant]
     Indication: Cardiac failure chronic
     Dosage: 25 MG, QD
     Route: 048
     Dates: start: 20200803
  8. LASIX [Concomitant]
     Active Substance: FUROSEMIDE
     Indication: Cardiac failure chronic
     Dosage: 20 MG, BID
     Route: 048
     Dates: start: 20200803
  9. ENTRESTO [Concomitant]
     Active Substance: SACUBITRIL\VALSARTAN
     Indication: Cardiac failure chronic
     Dosage: 100, BID
     Route: 048
     Dates: start: 20201109
  10. MAGNESIUM OXIDE [Concomitant]
     Active Substance: MAGNESIUM OXIDE
     Indication: Constipation
     Dosage: 500, BID
     Route: 048
     Dates: start: 20220726
  11. URSODIOL [Concomitant]
     Active Substance: URSODIOL
     Indication: Chronic hepatitis
     Dosage: 200, TID
     Dates: start: 20201208

REACTIONS (4)
  - Cerebral infarction [Recovered/Resolved with Sequelae]
  - Balance disorder [Unknown]
  - Hemiplegia [Recovering/Resolving]
  - Carotid artery stenosis [Unknown]

NARRATIVE: CASE EVENT DATE: 20230101
